FAERS Safety Report 10723221 (Version 1)
Quarter: 2015Q1

REPORT INFORMATION
  Report Type: Spontaneous
  Country: US (occurrence: US)
  Receive Date: 20150120
  Receipt Date: 20150120
  Transmission Date: 20150721
  Serious: No
  Sender: FDA-Public Use
  Company Number: US-PFIZER INC-2015024052

PATIENT
  Sex: Female

DRUGS (4)
  1. TRAMADOL [Suspect]
     Active Substance: TRAMADOL
     Dosage: UNK
  2. NICKEL GLUCONATE [Suspect]
     Active Substance: NICKEL GLUCONATE
     Dosage: UNK
  3. NEURONTIN [Suspect]
     Active Substance: GABAPENTIN
     Dosage: UNK
  4. DEMANOL [Suspect]
     Active Substance: DEANOL ACEGLUMATE
     Dosage: UNK

REACTIONS (1)
  - Drug hypersensitivity [Unknown]
